FAERS Safety Report 9783238 (Version 2)
Quarter: 2013Q4

REPORT INFORMATION
  Report Type: Spontaneous
  Country: GB (occurrence: GB)
  Receive Date: 20131226
  Receipt Date: 20131227
  Transmission Date: 20140711
  Serious: Yes (Other)
  Sender: FDA-Public Use
  Company Number: GB-PFIZER INC-2013368312

PATIENT
  Age: 60 Year
  Sex: Male
  Weight: 108 kg

DRUGS (7)
  1. VENLAFAXINE HCL [Suspect]
     Indication: DEPRESSION
     Dosage: 75 MG, 2X/DAY
     Route: 048
     Dates: start: 20131204, end: 20131212
  2. OMEPRAZOLE [Concomitant]
     Dosage: 20 MG, UNK
  3. FOLIC ACID [Concomitant]
     Dosage: 5 MG, UNK
  4. FEXOFENADINE [Concomitant]
     Dosage: 120 MG, UNK
  5. VITAMIN B12 [Concomitant]
     Dosage: UNK
  6. MIRTAZAPINE [Concomitant]
     Dosage: 30 MG (AT NIGHT), 1X/DAY
  7. OLOPATADINE [Concomitant]
     Dosage: UNK

REACTIONS (3)
  - Pancreatitis [Recovering/Resolving]
  - Abdominal pain [Unknown]
  - Amylase increased [Unknown]
